FAERS Safety Report 6698274-X (Version None)
Quarter: 2010Q2

REPORT INFORMATION
  Report Type: 
  Country: None (occurrence: None)
  Receive Date: 20100427
  Receipt Date: 20100420
  Transmission Date: 20101027
  Serious: Yes (Disabling)
  Sender: FDA-Public Use
  Company Number: CA-ASTRAZENECA-2010SE17665

PATIENT
  Age: 41 Year
  Sex: Female
  Weight: 54.5 kg

DRUGS (1)
  1. EMLA [Suspect]
     Route: 061

REACTIONS (9)
  - ARRHYTHMIA [None]
  - BLADDER DISORDER [None]
  - DIZZINESS [None]
  - GASTROINTESTINAL DISORDER [None]
  - NAUSEA [None]
  - PAIN OF SKIN [None]
  - PALPITATIONS [None]
  - VULVOVAGINAL PAIN [None]
  - WEIGHT DECREASED [None]
